FAERS Safety Report 5232837-3 (Version None)
Quarter: 2007Q1

REPORT INFORMATION
  Report Type: 
  Country: None (occurrence: None)
  Receive Date: 20070206
  Receipt Date: 20070206
  Transmission Date: 20070707
  Serious: No
  Sender: FDA-Public Use
  Company Number: None

PATIENT
  Age: 12 Year
  Sex: Female
  Weight: 45.3597 kg

DRUGS (1)
  1. TAMIFLU [Suspect]
     Indication: INFLUENZA
     Dosage: 1 CAPSULE  -75 MG-
     Dates: start: 20070202, end: 20070202

REACTIONS (3)
  - ABNORMAL BEHAVIOUR [None]
  - DYSKINESIA [None]
  - SPEECH DISORDER [None]
